FAERS Safety Report 20347234 (Version 1)
Quarter: 2022Q1

REPORT INFORMATION
  Report Type: Spontaneous
  Country: None (occurrence: US)
  Receive Date: 20220118
  Receipt Date: 20220118
  Transmission Date: 20220423
  Serious: Yes (Other)
  Sender: FDA-Public Use
  Company Number: US-Akron, Inc.-2124052

PATIENT
  Age: 72 Year
  Sex: Female

DRUGS (1)
  1. MOXIFLOXACIN [Suspect]
     Active Substance: MOXIFLOXACIN

REACTIONS (4)
  - Photophobia [Not Recovered/Not Resolved]
  - Miosis [Not Recovered/Not Resolved]
  - Iris atrophy [Not Recovered/Not Resolved]
  - Iris transillumination defect [Not Recovered/Not Resolved]
